FAERS Safety Report 8303705-5 (Version None)
Quarter: 2012Q2

REPORT INFORMATION
  Report Type: 
  Country: None (occurrence: None)
  Receive Date: 20120423
  Receipt Date: 20120420
  Transmission Date: 20120825
  Serious: Yes (Other)
  Sender: FDA-Public Use
  Company Number: US-PFIZER INC-2010111224

PATIENT
  Sex: Female
  Weight: 50 kg

DRUGS (2)
  1. HYDROCODONE [Concomitant]
     Indication: FIBROMYALGIA
     Dosage: UNK
  2. LYRICA [Suspect]
     Indication: FIBROMYALGIA
     Dosage: 150 MG, 2X/DAY
     Route: 048
     Dates: start: 20091101

REACTIONS (15)
  - VISION BLURRED [None]
  - PYREXIA [None]
  - AGITATION [None]
  - HYPERTENSION [None]
  - ORAL DISCOMFORT [None]
  - ASTHENIA [None]
  - MALAISE [None]
  - FEELING ABNORMAL [None]
  - PANIC ATTACK [None]
  - ORAL PAIN [None]
  - DRY MOUTH [None]
  - MYALGIA [None]
  - DYSPNOEA [None]
  - BLISTER [None]
  - DRY EYE [None]
